FAERS Safety Report 14914086 (Version 2)
Quarter: 2018Q2

REPORT INFORMATION
  Report Type: Report from Study
  Country: None (occurrence: CA)
  Receive Date: 20180518
  Receipt Date: 20180622
  Transmission Date: 20180711
  Serious: Yes (Hospitalization)
  Sender: FDA-Public Use
  Company Number: CA-ABBVIE-18S-028-2355674-00

PATIENT
  Age: 40 Year
  Sex: Female
  Weight: 97.16 kg

DRUGS (3)
  1. NORETHINDRONE ACETATE. [Concomitant]
     Active Substance: NORETHINDRONE ACETATE
     Dates: start: 201805
  2. LUPRON DEPOT [Suspect]
     Active Substance: LEUPROLIDE ACETATE
     Indication: DYSMENORRHOEA
     Route: 030
     Dates: start: 20121202, end: 20180402
  3. NORETHINDRONE ACETATE. [Concomitant]
     Active Substance: NORETHINDRONE ACETATE
     Indication: PRODUCT USED FOR UNKNOWN INDICATION
     Dates: end: 201804

REACTIONS (9)
  - Drug intolerance [Unknown]
  - Abdominal distension [Unknown]
  - Syncope [Unknown]
  - Anxiety [Unknown]
  - Influenza like illness [Unknown]
  - Physical disability [Unknown]
  - Angiopathy [Unknown]
  - Adverse drug reaction [Unknown]
  - Hyperhidrosis [Unknown]

NARRATIVE: CASE EVENT DATE: 201805
